FAERS Safety Report 6087007-6 (Version None)
Quarter: 2009Q1

REPORT INFORMATION
  Report Type: 
  Country: None (occurrence: None)
  Receive Date: 20090223
  Receipt Date: 20090212
  Transmission Date: 20090719
  Serious: Yes (Hospitalization, Disabling)
  Sender: FDA-Public Use
  Company Number: CH-ASTRAZENECA-2009PK00578

PATIENT
  Age: 78 Year
  Sex: Female

DRUGS (11)
  1. SEROQUEL [Suspect]
     Route: 048
     Dates: start: 20071002, end: 20071104
  2. SEROQUEL [Suspect]
     Route: 048
     Dates: start: 20071105, end: 20071106
  3. SEROQUEL [Suspect]
     Route: 048
     Dates: start: 20071107, end: 20071110
  4. SEROQUEL [Suspect]
     Route: 048
     Dates: start: 20071111, end: 20071112
  5. SEROQUEL [Suspect]
     Route: 048
     Dates: start: 20071113, end: 20071113
  6. SEROQUEL [Suspect]
     Route: 048
     Dates: start: 20071114, end: 20071114
  7. SEROQUEL [Suspect]
     Route: 048
     Dates: start: 20071115, end: 20071115
  8. SEROQUEL [Suspect]
     Route: 048
     Dates: start: 20071116, end: 20071116
  9. SEROQUEL [Suspect]
     Route: 048
     Dates: start: 20071117, end: 20071118
  10. SEROQUEL [Suspect]
     Route: 048
     Dates: start: 20071119
  11. EBIXA [Suspect]
     Route: 048
     Dates: start: 20071026

REACTIONS (1)
  - FEMORAL NECK FRACTURE [None]
